FAERS Safety Report 4815161-X (Version None)
Quarter: 2005Q4

REPORT INFORMATION
  Report Type: 
  Country: None (occurrence: None)
  Receive Date: 20051026
  Receipt Date: 20051017
  Transmission Date: 20060501
  Serious: Yes (Hospitalization)
  Sender: FDA-Public Use
  Company Number: ST-2005-008618

PATIENT
  Age: 63 Year
  Sex: Female
  Weight: 45 kg

DRUGS (3)
  1. OLMETEC [Suspect]
     Indication: ESSENTIAL HYPERTENSION
     Dosage: 40 MG QD PO
     Route: 048
     Dates: start: 20050705, end: 20050913
  2. CALBLOCK [Suspect]
     Indication: ESSENTIAL HYPERTENSION
     Dosage: 16 MG QD PO
     Route: 048
     Dates: start: 20050705, end: 20050913
  3. ARTIST [Suspect]
     Indication: ESSENTIAL HYPERTENSION
     Dosage: 10 MG QD PO
     Route: 048
     Dates: start: 20050719, end: 20050913

REACTIONS (2)
  - AUTOIMMUNE HEPATITIS [None]
  - LIVER DISORDER [None]
